FAERS Safety Report 5886606-1 (Version None)
Quarter: 2008Q3

REPORT INFORMATION
  Report Type: 
  Country: None (occurrence: None)
  Receive Date: 20080917
  Receipt Date: 20080904
  Transmission Date: 20090109
  Serious: Yes (Death)
  Sender: FDA-Public Use
  Company Number: PHHY2008JP19984

PATIENT
  Sex: Female
  Weight: 29 kg

DRUGS (5)
  1. DIOVAN [Suspect]
     Indication: HYPERTENSION
     Dosage: 40 MG/DAY
     Route: 048
     Dates: start: 20070824, end: 20070827
  2. DIOVAN [Suspect]
     Dosage: 80 MG/DAY
     Route: 048
     Dates: start: 20070828, end: 20080115
  3. BLOPRESS [Concomitant]
     Indication: HYPERTENSION
     Dosage: 8 MG, UNK
     Route: 048
     Dates: start: 20070307, end: 20070823
  4. ACINON [Concomitant]
     Dosage: 300 MG, UNK
     Route: 048
     Dates: start: 20050307, end: 20080116
  5. ALFAROL [Concomitant]
     Dosage: 2 UG, UNK
     Route: 048
     Dates: start: 20050307, end: 20080116

REACTIONS (4)
  - CATHETER PLACEMENT [None]
  - CATHETER RELATED INFECTION [None]
  - PYREXIA [None]
  - SEPSIS [None]
